FAERS Safety Report 25498748 (Version 1)
Quarter: 2025Q3

REPORT INFORMATION
  Report Type: Spontaneous
  Country: EU (occurrence: EU)
  Receive Date: 20250701
  Receipt Date: 20250701
  Transmission Date: 20251021
  Serious: Yes (Death, Other)
  Sender: MYLAN
  Company Number: EU-MYLANLABS-2025M1055000

PATIENT

DRUGS (24)
  1. DOXORUBICIN [Suspect]
     Active Substance: DOXORUBICIN
     Indication: Synovial sarcoma
     Dosage: 36 MILLIGRAM, QD
  2. DOXORUBICIN [Suspect]
     Active Substance: DOXORUBICIN
     Dosage: 36 MILLIGRAM, QD
  3. DOXORUBICIN [Suspect]
     Active Substance: DOXORUBICIN
     Dosage: 36 MILLIGRAM, QD
     Route: 064
  4. DOXORUBICIN [Suspect]
     Active Substance: DOXORUBICIN
     Dosage: 36 MILLIGRAM, QD
     Route: 064
  5. DOXORUBICIN [Suspect]
     Active Substance: DOXORUBICIN
     Dosage: 36 MILLIGRAM, QD
  6. DOXORUBICIN [Suspect]
     Active Substance: DOXORUBICIN
     Dosage: 36 MILLIGRAM, QD
  7. DOXORUBICIN [Suspect]
     Active Substance: DOXORUBICIN
     Dosage: 36 MILLIGRAM, QD
     Route: 064
  8. DOXORUBICIN [Suspect]
     Active Substance: DOXORUBICIN
     Dosage: 36 MILLIGRAM, QD
     Route: 064
  9. IFOSFAMIDE [Suspect]
     Active Substance: IFOSFAMIDE
     Indication: Synovial sarcoma
     Dosage: 4650 MILLIGRAM, QD
  10. IFOSFAMIDE [Suspect]
     Active Substance: IFOSFAMIDE
     Dosage: 4650 MILLIGRAM, QD
  11. IFOSFAMIDE [Suspect]
     Active Substance: IFOSFAMIDE
     Dosage: 4650 MILLIGRAM, QD
     Route: 064
  12. IFOSFAMIDE [Suspect]
     Active Substance: IFOSFAMIDE
     Dosage: 4650 MILLIGRAM, QD
     Route: 064
  13. IFOSFAMIDE [Suspect]
     Active Substance: IFOSFAMIDE
     Dosage: 4650 MILLIGRAM, QD
  14. IFOSFAMIDE [Suspect]
     Active Substance: IFOSFAMIDE
     Dosage: 4650 MILLIGRAM, QD
  15. IFOSFAMIDE [Suspect]
     Active Substance: IFOSFAMIDE
     Dosage: 4650 MILLIGRAM, QD
     Route: 064
  16. IFOSFAMIDE [Suspect]
     Active Substance: IFOSFAMIDE
     Dosage: 4650 MILLIGRAM, QD
     Route: 064
  17. PEGFILGRASTIM [Suspect]
     Active Substance: PEGFILGRASTIM
     Indication: Neutropenia
  18. PEGFILGRASTIM [Suspect]
     Active Substance: PEGFILGRASTIM
  19. PEGFILGRASTIM [Suspect]
     Active Substance: PEGFILGRASTIM
     Route: 064
  20. PEGFILGRASTIM [Suspect]
     Active Substance: PEGFILGRASTIM
     Route: 064
  21. PEGFILGRASTIM [Suspect]
     Active Substance: PEGFILGRASTIM
  22. PEGFILGRASTIM [Suspect]
     Active Substance: PEGFILGRASTIM
  23. PEGFILGRASTIM [Suspect]
     Active Substance: PEGFILGRASTIM
     Route: 064
  24. PEGFILGRASTIM [Suspect]
     Active Substance: PEGFILGRASTIM
     Route: 064

REACTIONS (3)
  - Foetal death [Fatal]
  - Foetal exposure during pregnancy [Fatal]
  - Foetal growth restriction [Unknown]
